FAERS Safety Report 8603603-3 (Version None)
Quarter: 2012Q3

REPORT INFORMATION
  Report Type: 
  Country: None (occurrence: None)
  Receive Date: 20120817
  Receipt Date: 20120808
  Transmission Date: 20120928
  Serious: No
  Sender: FDA-Public Use
  Company Number: US-ASTRAZENECA-2011SE61477

PATIENT
  Age: 82 Year
  Sex: Male

DRUGS (1)
  1. TOPROL-XL [Suspect]
     Route: 048

REACTIONS (4)
  - OEDEMA PERIPHERAL [None]
  - FAECAL INCONTINENCE [None]
  - DEMENTIA ALZHEIMER'S TYPE [None]
  - FLATULENCE [None]
